FAERS Safety Report 20595503 (Version 1)
Quarter: 2022Q1

REPORT INFORMATION
  Report Type: Spontaneous
  Country: SA (occurrence: SA)
  Receive Date: 20220315
  Receipt Date: 20220315
  Transmission Date: 20220423
  Serious: Yes (Life-Threatening, Other)
  Sender: FDA-Public Use
  Company Number: SA-Accord-255506

PATIENT
  Age: 73 Year
  Sex: Female

DRUGS (2)
  1. CAPECITABINE [Interacting]
     Active Substance: CAPECITABINE
     Indication: Colorectal cancer
     Dosage: 1000 MG/M2 , TWICE DAILY FOR 2 WEEKS, FOLLOWED BY 1 WEEK OF
     Dates: start: 2020
  2. WARFARIN [Interacting]
     Active Substance: WARFARIN
     Indication: Atrial fibrillation
     Dosage: HER THERAPEUTIC RANGE IS 2-3, LONG-TERM TREATMENT
     Route: 048

REACTIONS (3)
  - Drug interaction [Unknown]
  - International normalised ratio increased [Recovered/Resolved]
  - Anticoagulation drug level below therapeutic [Recovered/Resolved]
